FAERS Safety Report 5489086-3 (Version None)
Quarter: 2007Q4

REPORT INFORMATION
  Report Type: 
  Country: None (occurrence: None)
  Receive Date: 20071005
  Receipt Date: 20070711
  Transmission Date: 20080405
  Serious: Yes (Other)
  Sender: FDA-Public Use
  Company Number: PHEH2007US09889

PATIENT
  Age: 57 Year
  Sex: Male
  Weight: 108.8 kg

DRUGS (4)
  1. TEKTURNA [Suspect]
     Indication: HYPERTENSION
     Dosage: 150 MG, QD, ORAL
     Route: 048
     Dates: start: 20070601, end: 20070706
  2. LASIX [Concomitant]
  3. NORVASC [Concomitant]
  4. DIOVAN [Concomitant]

REACTIONS (1)
  - BLOOD PRESSURE INCREASED [None]
